FAERS Safety Report 14181562 (Version 3)
Quarter: 2018Q1

REPORT INFORMATION
  Report Type: Spontaneous
  Country: FR (occurrence: FR)
  Receive Date: 20171113
  Receipt Date: 20180216
  Transmission Date: 20180508
  Serious: Yes (Other)
  Sender: FDA-Public Use
  Company Number: FR-MERCK KGAA-2033873

PATIENT
  Age: 46 Year
  Sex: Female
  Weight: 57 kg

DRUGS (1)
  1. NOVOTHYROX [Suspect]
     Active Substance: LEVOTHYROXINE SODIUM
     Indication: AUTOIMMUNE THYROIDITIS
     Route: 048
     Dates: start: 20170601

REACTIONS (15)
  - Fluid retention [Recovered/Resolved]
  - Depression [Recovered/Resolved]
  - Memory impairment [Recovered/Resolved]
  - Alopecia [Recovered/Resolved]
  - Muscle spasms [Recovered/Resolved]
  - Weight increased [Recovered/Resolved]
  - Visual impairment [Recovered/Resolved]
  - Temperature intolerance [Recovered/Resolved]
  - Fatigue [Recovered/Resolved]
  - Back pain [Recovering/Resolving]
  - Constipation [Recovered/Resolved]
  - Migraine [Recovered/Resolved]
  - Menorrhagia [Recovered/Resolved]
  - Blood thyroid stimulating hormone [Recovered/Resolved]
  - Skin lesion [Recovered/Resolved]

NARRATIVE: CASE EVENT DATE: 201707
